FAERS Safety Report 15190142 (Version 1)
Quarter: 2018Q3

REPORT INFORMATION
  Report Type: Spontaneous
  Country: US (occurrence: US)
  Receive Date: 20180724
  Receipt Date: 20180724
  Transmission Date: 20181010
  Serious: Yes (Hospitalization)
  Sender: FDA-Public Use
  Company Number: US-ENDO PHARMACEUTICALS INC-2018-040239

PATIENT
  Age: 48 Year
  Sex: Male

DRUGS (4)
  1. AMFETAMINE W/DEXAMFETAMINE [Suspect]
     Active Substance: AMPHETAMINE SULFATE\DEXTROAMPHETAMINE
     Indication: PRODUCT USED FOR UNKNOWN INDICATION
     Dosage: 60 MG, DAILY (IN CYCLICAL FASHION, 7 MONTHS EACH YEAR FOR THE LAST 4 YEARS)
     Route: 065
  2. CAFFEINE. [Suspect]
     Active Substance: CAFFEINE
     Dosage: 1 CUP, DAILY (APPROX. 80 MG)
     Route: 048
  3. CAFFEINE. [Suspect]
     Active Substance: CAFFEINE
     Indication: PRODUCT USED FOR UNKNOWN INDICATION
     Dosage: MINIMUM 7 ESPRESSOS, EACH MORNING (APPROX. 560 MG, DAILY)
     Route: 048
  4. TESTIM [Suspect]
     Active Substance: TESTOSTERONE
     Indication: PRODUCT USED FOR UNKNOWN INDICATION
     Dosage: UNK, CYCLICAL, 7 MONTHS EACH YEAR FOR THE LAST 4 YEARS
     Route: 065

REACTIONS (3)
  - Substance-induced psychotic disorder [Recovered/Resolved]
  - Intentional product misuse [Unknown]
  - Drug interaction [Unknown]
